FAERS Safety Report 24318559 (Version 1)
Quarter: 2024Q3

REPORT INFORMATION
  Report Type: Report from Study
  Country: GB (occurrence: None)
  Receive Date: 20240913
  Receipt Date: 20240913
  Transmission Date: 20241017
  Serious: Yes (Other)
  Sender: ASTRAZENECA
  Company Number: 2024A203731

PATIENT

DRUGS (4)
  1. OMEPRAZOLE [Suspect]
     Active Substance: OMEPRAZOLE
     Route: 048
  2. TOCILIZUMAB [Suspect]
     Active Substance: TOCILIZUMAB
     Indication: COVID-19
     Route: 042
  3. ALBUTEROL [Suspect]
     Active Substance: ALBUTEROL
     Dosage: 100 MCG AS REQUIRED
     Route: 055
  4. SUMATRIPTAN [Suspect]
     Active Substance: SUMATRIPTAN\SUMATRIPTAN SUCCINATE
     Dosage: 50 MG AS REQUIRED
     Route: 048

REACTIONS (4)
  - Foetal exposure during pregnancy [Unknown]
  - Lymphopenia [Recovered/Resolved]
  - Respiratory distress [Unknown]
  - Premature baby [Unknown]
